FAERS Safety Report 5106196-0 (Version None)
Quarter: 2006Q3

REPORT INFORMATION
  Report Type: 
  Country: None (occurrence: None)
  Receive Date: 20060918
  Receipt Date: 20060906
  Transmission Date: 20061208
  Serious: Yes (Hospitalization)
  Sender: FDA-Public Use
  Company Number: FR-BRISTOL-MYERS SQUIBB COMPANY-13505243

PATIENT
  Sex: Male

DRUGS (4)
  1. ERBITUX [Suspect]
     Indication: NEOPLASM MALIGNANT
     Route: 042
  2. RADIOTHERAPY [Suspect]
     Indication: NEOPLASM MALIGNANT
  3. ANTIHISTAMINE NOS [Concomitant]
     Indication: PREMEDICATION
  4. SOLU-MEDROL [Concomitant]
     Indication: PREMEDICATION

REACTIONS (1)
  - CARDIOGENIC SHOCK [None]
